FAERS Safety Report 15862509 (Version 1)
Quarter: 2019Q1

REPORT INFORMATION
  Report Type: Spontaneous
  Country: US (occurrence: US)
  Receive Date: 20190124
  Receipt Date: 20190124
  Transmission Date: 20190417
  Serious: Yes (Death)
  Sender: FDA-Public Use
  Company Number: None

PATIENT
  Sex: Male

DRUGS (1)
  1. ETOPOSIDE. [Suspect]
     Active Substance: ETOPOSIDE
     Indication: MALIGNANT NERVOUS SYSTEM NEOPLASM
     Dosage: ?          OTHER FREQUENCY:QD FOR 14 DAYS;?
     Route: 048
     Dates: start: 20180728

REACTIONS (1)
  - Death [None]
